FAERS Safety Report 6491427-5 (Version None)
Quarter: 2009Q4

REPORT INFORMATION
  Report Type: 
  Country: None (occurrence: None)
  Receive Date: 20091211
  Receipt Date: 20091204
  Transmission Date: 20100525
  Serious: Yes (Other)
  Sender: FDA-Public Use
  Company Number: US-WYE-H03848208

PATIENT
  Sex: Female

DRUGS (2)
  1. PREMARIN [Suspect]
  2. PREMPRO [Suspect]

REACTIONS (2)
  - BREAST CANCER RECURRENT [None]
  - GALLBLADDER DISORDER [None]
